FAERS Safety Report 8786420 (Version 5)
Quarter: 2014Q3

REPORT INFORMATION
  Report Type: Spontaneous
  Country: US (occurrence: US)
  Receive Date: 20120914
  Receipt Date: 20140728
  Transmission Date: 20150326
  Serious: Yes (Hospitalization, Other)
  Sender: FDA-Public Use
  Company Number: US-009507513-2011SP040937

PATIENT
  Sex: Female
  Weight: 128.8 kg

DRUGS (2)
  1. NUVARING [Suspect]
     Active Substance: ETHINYL ESTRADIOL\ETONOGESTREL
     Indication: MENSTRUAL CYCLE MANAGEMENT
  2. NUVARING [Suspect]
     Active Substance: ETHINYL ESTRADIOL\ETONOGESTREL
     Indication: CONTRACEPTION
     Dosage: 0.015 MG/24HR, 3 WEEKS IN 1 WEEK OUT
     Route: 067
     Dates: start: 200811, end: 20090903

REACTIONS (22)
  - Arthralgia [Unknown]
  - Lung disorder [Unknown]
  - Papilloma viral infection [Unknown]
  - Thrombosis [Unknown]
  - Meningitis viral [Recovering/Resolving]
  - Ligament sprain [Unknown]
  - Cervical dysplasia [Unknown]
  - Loss of consciousness [Unknown]
  - Joint swelling [Unknown]
  - Sexually transmitted disease [Unknown]
  - Viral infection [Recovering/Resolving]
  - Pulmonary embolism [Unknown]
  - Chest pain [Unknown]
  - Laceration [Unknown]
  - Cystitis haemorrhagic [Unknown]
  - Headache [Unknown]
  - Deep vein thrombosis [Unknown]
  - Dyspnoea [Unknown]
  - Asthma [Unknown]
  - Pneumonia [Unknown]
  - Depression [Unknown]
  - Pyrexia [Recovering/Resolving]

NARRATIVE: CASE EVENT DATE: 20080513
